FAERS Safety Report 5448952-5 (Version None)
Quarter: 2007Q3

REPORT INFORMATION
  Report Type: 
  Country: None (occurrence: None)
  Receive Date: 20070911
  Receipt Date: 20070904
  Transmission Date: 20080115
  Serious: Yes (Life-Threatening, Hospitalization)
  Sender: FDA-Public Use
  Company Number: GB-BAYER-200710956BNE

PATIENT
  Age: 76 Year
  Sex: Female
  Weight: 69 kg

DRUGS (15)
  1. CIPROFLOXACIN [Suspect]
     Indication: DIVERTICULITIS
     Dosage: TOTAL DAILY DOSE: 1000 MG
     Route: 048
     Dates: start: 20070803, end: 20070807
  2. CIPROFLOXACIN [Suspect]
     Dates: start: 20070717, end: 20070723
  3. ASPIRIN [Concomitant]
     Dosage: TOTAL DAILY DOSE: 75 MG
  4. BECLOMETHASONE DIPROPIONATE [Concomitant]
     Dosage: TOTAL DAILY DOSE: 1000 ?G  UNIT DOSE: 250 ?G
     Route: 055
  5. CAPTOPRIL [Concomitant]
     Dosage: TOTAL DAILY DOSE: 150 MG
  6. DOXAZOSIN MESYLATE [Concomitant]
     Dosage: TOTAL DAILY DOSE: 8 MG
  7. FORMOTEROL FUMARATE [Concomitant]
     Dosage: TOTAL DAILY DOSE: 24 ?G
  8. FUROSEMIDE [Concomitant]
     Dosage: TOTAL DAILY DOSE: 40 MG
  9. LUMIGAN [Concomitant]
     Dosage: TOTAL DAILY DOSE: 1 DF
     Route: 047
  10. PARACETAMOL [Concomitant]
     Indication: PAIN
  11. PROCHLORPERAZINE [Concomitant]
     Indication: NAUSEA
     Route: 048
     Dates: start: 20070803, end: 20070807
  12. SALBUTAMOL [Concomitant]
     Indication: DYSPNOEA
     Route: 055
  13. SALBUTAMOL [Concomitant]
     Route: 055
  14. SIMVASTATIN [Concomitant]
     Indication: BLOOD CHOLESTEROL INCREASED
     Dosage: TOTAL DAILY DOSE: 20 MG
  15. VALSARTAN [Concomitant]
     Indication: HYPERTENSION
     Dosage: TOTAL DAILY DOSE: 80 MG

REACTIONS (2)
  - NEPHRITIS INTERSTITIAL [None]
  - RENAL FAILURE ACUTE [None]
